FAERS Safety Report 13381970 (Version 1)
Quarter: 2017Q1

REPORT INFORMATION
  Report Type: Spontaneous
  Country: US (occurrence: US)
  Receive Date: 20170329
  Receipt Date: 20170329
  Transmission Date: 20170429
  Serious: No
  Sender: FDA-Public Use
  Company Number: US-MYLANLABS-2017M1001744

PATIENT
  Age: 66 Year
  Sex: Male
  Weight: 104.31 kg

DRUGS (5)
  1. LOSARTAN POTASSIUM. [Suspect]
     Active Substance: LOSARTAN POTASSIUM
     Indication: BLOOD PRESSURE MANAGEMENT
     Dosage: 100 MG, UNK
  2. INLYTA [Suspect]
     Active Substance: AXITINIB
     Dosage: 3 MG, BID
     Dates: start: 20161216
  3. INLYTA [Suspect]
     Active Substance: AXITINIB
     Indication: RENAL CELL CARCINOMA
     Dosage: 5 MG, QD
     Route: 048
     Dates: start: 20161202, end: 201612
  4. CHLORTALIDONE [Suspect]
     Active Substance: CHLORTHALIDONE
     Indication: BLOOD PRESSURE MANAGEMENT
     Dosage: 25 MG, UNK
  5. AMLODIPINE BESILATE [Suspect]
     Active Substance: AMLODIPINE BESYLATE
     Indication: BLOOD PRESSURE MANAGEMENT
     Dosage: 5 MG, QD

REACTIONS (1)
  - Blood pressure increased [Not Recovered/Not Resolved]

NARRATIVE: CASE EVENT DATE: 20161203
